FAERS Safety Report 10096734 (Version 2)
Quarter: 2014Q2

REPORT INFORMATION
  Report Type: Report from Study
  Country: US (occurrence: US)
  Receive Date: 20140422
  Receipt Date: 20140624
  Transmission Date: 20141212
  Serious: Yes (Other)
  Sender: FDA-Public Use
  Company Number: US-ALEXION PHARMACEUTICALS INC.-A201001784

PATIENT
  Sex: Female

DRUGS (1)
  1. SOLIRIS [Suspect]
     Indication: PAROXYSMAL NOCTURNAL HAEMOGLOBINURIA
     Dosage: UNK
     Route: 042
     Dates: start: 200711, end: 20080104

REACTIONS (5)
  - Meningitis [Unknown]
  - Dyspnoea [Unknown]
  - Oedema peripheral [Unknown]
  - Palpitations [Unknown]
  - Hypersensitivity [Unknown]
